FAERS Safety Report 18894890 (Version 9)
Quarter: 2021Q4

REPORT INFORMATION
  Report Type: Report from Study
  Country: FR (occurrence: FR)
  Receive Date: 20210215
  Receipt Date: 20211222
  Transmission Date: 20220303
  Serious: Yes (Hospitalization, Other)
  Sender: FDA-Public Use
  Company Number: FR-BRISTOL-MYERS SQUIBB COMPANY-BMS-2021-009012

PATIENT
  Age: 54 Year
  Sex: Male

DRUGS (10)
  1. NIVOLUMAB [Suspect]
     Active Substance: NIVOLUMAB
     Indication: Renal cancer
     Dosage: 235 MILLIGRAM, Q3WK
     Route: 042
     Dates: start: 20201009, end: 20201120
  2. NIVOLUMAB [Suspect]
     Active Substance: NIVOLUMAB
     Dosage: 235 MILLIGRAM, Q3WK
     Route: 042
     Dates: end: 20201209
  3. NIVOLUMAB [Suspect]
     Active Substance: NIVOLUMAB
     Dosage: 480 MILLIGRAM,MONTHLY
     Route: 042
     Dates: start: 20210210
  4. IPILIMUMAB [Suspect]
     Active Substance: IPILIMUMAB
     Indication: Renal cancer
     Dosage: 77.5 MILLIGRAM, Q3WK
     Route: 042
     Dates: start: 20201009, end: 20201120
  5. CORDARONE [Suspect]
     Active Substance: AMIODARONE HYDROCHLORIDE
     Indication: Product used for unknown indication
     Route: 065
  6. IMODIUM [Concomitant]
     Active Substance: LOPERAMIDE HYDROCHLORIDE
     Indication: Product used for unknown indication
     Dosage: UNK
     Route: 065
  7. NALOXEGOL [Concomitant]
     Active Substance: NALOXEGOL
     Indication: Product used for unknown indication
     Dosage: UNK
     Route: 065
  8. CAFFEINE [Concomitant]
     Active Substance: CAFFEINE
     Indication: Product used for unknown indication
     Dosage: UNK
     Route: 065
  9. OPIUM [Concomitant]
     Active Substance: OPIUM
     Indication: Product used for unknown indication
     Dosage: UNK
     Route: 065
  10. ACETAMINOPHEN [Concomitant]
     Active Substance: ACETAMINOPHEN
     Indication: Product used for unknown indication
     Dosage: UNK
     Route: 065

REACTIONS (15)
  - Diarrhoea [Recovered/Resolved]
  - Osteosis [Recovering/Resolving]
  - Hyperthyroidism [Recovering/Resolving]
  - Spinal cord compression [Unknown]
  - Osteolysis [Unknown]
  - Asthenia [Not Recovered/Not Resolved]
  - Atrial fibrillation [Recovered/Resolved]
  - Dyspnoea [Unknown]
  - Dizziness [Unknown]
  - Malaise [Unknown]
  - Weight decreased [Unknown]
  - Parosmia [Recovered/Resolved]
  - Decreased appetite [Not Recovered/Not Resolved]
  - Prescribed underdose [Unknown]
  - Joint effusion [Not Recovered/Not Resolved]

NARRATIVE: CASE EVENT DATE: 20201210
